FAERS Safety Report 25450827 (Version 1)
Quarter: 2025Q2

REPORT INFORMATION
  Report Type: Spontaneous
  Country: US (occurrence: US)
  Receive Date: 20250618
  Receipt Date: 20250618
  Transmission Date: 20250717
  Serious: No
  Sender: PFIZER
  Company Number: US-PFIZER INC-202500123121

PATIENT
  Age: 20 Year
  Sex: Female

DRUGS (18)
  1. LITFULO [Suspect]
     Active Substance: RITLECITINIB TOSYLATE
     Dates: start: 20240629, end: 202505
  2. MELATONIN [Concomitant]
     Active Substance: MELATONIN
  3. CALCIUM [Concomitant]
     Active Substance: CALCIUM
  4. MINOXIDIL [Concomitant]
     Active Substance: MINOXIDIL
  5. VITAMIN B COMPLEX [Concomitant]
     Active Substance: CYANOCOBALAMIN\DEXPANTHENOL\NIACINAMIDE\PYRIDOXINE HYDROCHLORIDE\RIBOFLAVIN 5^-PHOSPHATE SODIUM\THIA
  6. VITAMIN C [Concomitant]
     Active Substance: ASCORBIC ACID
  7. ZADITOR [Concomitant]
     Active Substance: KETOTIFEN FUMARATE
  8. ZYRTEC [Concomitant]
     Active Substance: CETIRIZINE HYDROCHLORIDE
  9. OLOPATADINE [Concomitant]
     Active Substance: OLOPATADINE
  10. ALLEGRA ALLERGY [Concomitant]
     Active Substance: FEXOFENADINE HYDROCHLORIDE
  11. VITAMIN D NOS [Concomitant]
     Active Substance: CHOLECALCIFEROL\ERGOCALCIFEROL
  12. GEMMILY [Concomitant]
     Active Substance: ETHINYL ESTRADIOL\NORETHINDRONE ACETATE
  13. CETIRIZINE [Concomitant]
     Active Substance: CETIRIZINE HYDROCHLORIDE
  14. CLINDAMYCIN [Concomitant]
     Active Substance: CLINDAMYCIN
  15. FLUOCINONIDE [Concomitant]
     Active Substance: FLUOCINONIDE
  16. MOMETASONE [Concomitant]
     Active Substance: MOMETASONE
  17. MUPIROCIN [Concomitant]
     Active Substance: MUPIROCIN
  18. TACROLIMUS [Concomitant]
     Active Substance: TACROLIMUS

REACTIONS (1)
  - Fatigue [Recovered/Resolved]
